FAERS Safety Report 6771428-X (Version None)
Quarter: 2010Q2

REPORT INFORMATION
  Report Type: 
  Country: None (occurrence: None)
  Receive Date: 20100616
  Receipt Date: 20100609
  Transmission Date: 20101027
  Serious: Yes (Hospitalization)
  Sender: FDA-Public Use
  Company Number: FR-ASTRAZENECA-2010SE16676

PATIENT
  Age: 34 Year
  Sex: Female

DRUGS (18)
  1. NEXIUM [Suspect]
     Route: 048
     Dates: end: 20100211
  2. NEXIUM [Suspect]
     Route: 048
     Dates: start: 20100303
  3. LEXOMIL ROCHE [Suspect]
     Route: 048
  4. ZOPHREN [Suspect]
     Dates: start: 20100128, end: 20100211
  5. ZOPHREN [Suspect]
     Dates: start: 20100218
  6. EMEND [Suspect]
     Dates: end: 20100211
  7. EMEND [Suspect]
     Dates: start: 20100218
  8. VOGALIB [Suspect]
     Dates: end: 20100211
  9. SPASFON [Suspect]
     Dates: end: 20100211
  10. SPASFON [Suspect]
     Dates: start: 20100218
  11. DEBRIDAT [Suspect]
     Dates: end: 20100211
  12. DEBRIDAT [Suspect]
     Dates: start: 20100218
  13. SOLUPRED [Suspect]
     Dates: end: 20100211
  14. SOLUPRED [Suspect]
     Dates: start: 20100309
  15. MOTILIUM [Concomitant]
  16. PRIMPERAN [Concomitant]
  17. GAVISCON [Concomitant]
  18. CISPLATIN [Concomitant]
     Indication: NEOPLASM MALIGNANT

REACTIONS (1)
  - CYTOLYTIC HEPATITIS [None]
